FAERS Safety Report 9028568 (Version 17)
Quarter: 2017Q1

REPORT INFORMATION
  Report Type: Spontaneous
  Country: US (occurrence: US)
  Receive Date: 20130124
  Receipt Date: 20170308
  Transmission Date: 20170429
  Serious: Yes (Hospitalization, Other)
  Sender: FDA-Public Use
  Company Number: US-GLAXOSMITHKLINE-A1009393A

PATIENT
  Age: 54 Year
  Sex: Female

DRUGS (14)
  1. FLOLAN [Suspect]
     Active Substance: EPOPROSTENOL SODIUM
     Dosage: UNK
  2. FLOLAN [Suspect]
     Active Substance: EPOPROSTENOL SODIUM
     Indication: PULMONARY ARTERIAL HYPERTENSION
     Dosage: UNK, U
  3. FLOLAN [Suspect]
     Active Substance: EPOPROSTENOL SODIUM
     Dosage: 39 DF, CO
  4. FLOLAN [Suspect]
     Active Substance: EPOPROSTENOL SODIUM
     Dosage: UNK
     Dates: start: 20020826
  5. FLOLAN [Suspect]
     Active Substance: EPOPROSTENOL SODIUM
     Dosage: UNK
     Dates: start: 20020826
  6. FLOLAN [Suspect]
     Active Substance: EPOPROSTENOL SODIUM
     Dosage: 39 DF, CO
  7. FLOLAN [Suspect]
     Active Substance: EPOPROSTENOL SODIUM
     Dosage: 39 DF, CO
     Dates: start: 20020823
  8. FLOLAN [Suspect]
     Active Substance: EPOPROSTENOL SODIUM
     Dosage: UNK, CO
     Dates: start: 20020823
  9. FLOLAN [Suspect]
     Active Substance: EPOPROSTENOL SODIUM
     Dosage: 39 DF, CO
     Route: 042
  10. OPSITE [Suspect]
     Active Substance: POLYURETHANE
     Indication: CATHETER PLACEMENT
     Dosage: UNK
     Dates: end: 2016
  11. COUMADIN [Concomitant]
     Active Substance: WARFARIN SODIUM
  12. FLOLAN [Suspect]
     Active Substance: EPOPROSTENOL SODIUM
     Indication: PULMONARY ARTERIAL HYPERTENSION
     Dosage: 39 NG/KG/MIN CONTINUOUSLY (CONCENTRATION 60,000 NG/ML; 1.5 MG VIAL STRENGTH)
     Route: 042
     Dates: start: 20020823
  13. FLOLAN [Suspect]
     Active Substance: EPOPROSTENOL SODIUM
     Dosage: 39 DF, CO
     Dates: start: 20020823
  14. FLOLAN [Suspect]
     Active Substance: EPOPROSTENOL SODIUM
     Dosage: 39 DF, CO
     Dates: start: 20020823

REACTIONS (28)
  - Dermatitis contact [Unknown]
  - Application site rash [Unknown]
  - Application site pruritus [Recovered/Resolved]
  - Platelet disorder [Not Recovered/Not Resolved]
  - Sinusitis [Unknown]
  - Nasopharyngitis [Unknown]
  - Infection [Unknown]
  - Device related infection [Unknown]
  - Adverse drug reaction [Unknown]
  - Staphylococcal infection [Unknown]
  - Pulmonary arterial pressure increased [Unknown]
  - Application site irritation [Recovered/Resolved]
  - Pneumonia [Unknown]
  - Sepsis [Unknown]
  - Infusion site infection [Unknown]
  - Infusion site haemorrhage [Unknown]
  - Central venous catheterisation [Unknown]
  - Fluid overload [Unknown]
  - Fluid retention [Unknown]
  - Application site infection [Unknown]
  - Hospitalisation [Not Recovered/Not Resolved]
  - Dyspnoea [Unknown]
  - Dizziness [Unknown]
  - Complication associated with device [Unknown]
  - Sinus disorder [Unknown]
  - Epistaxis [Unknown]
  - Biliary cirrhosis primary [Unknown]
  - Cough [Unknown]

NARRATIVE: CASE EVENT DATE: 2016
